FAERS Safety Report 11293135 (Version 2)
Quarter: 2015Q4

REPORT INFORMATION
  Report Type: Report from Study
  Country: US (occurrence: US)
  Receive Date: 20150722
  Receipt Date: 20151009
  Transmission Date: 20160304
  Serious: Yes (Hospitalization, Other)
  Sender: FDA-Public Use
  Company Number: US-JNJFOC-20150716273

PATIENT
  Age: 76 Year
  Sex: Female
  Weight: 46.8 kg

DRUGS (2)
  1. IBRUTINIB [Suspect]
     Active Substance: IBRUTINIB
     Indication: LYMPHOMA
     Route: 048
     Dates: start: 20150422, end: 20150506
  2. DEXAMETHASONE. [Suspect]
     Active Substance: DEXAMETHASONE
     Indication: LYMPHOMA
     Dosage: 10 MG/M2, QD (DAYS 1-5)
     Route: 048
     Dates: start: 20150422, end: 20150506

REACTIONS (5)
  - Depressed level of consciousness [Not Recovered/Not Resolved]
  - Sepsis [Not Recovered/Not Resolved]
  - Haematoma [Not Recovered/Not Resolved]
  - Device related infection [Not Recovered/Not Resolved]
  - Lung infection [Not Recovered/Not Resolved]

NARRATIVE: CASE EVENT DATE: 20150502
